FAERS Safety Report 17745262 (Version 1)
Quarter: 2020Q2

REPORT INFORMATION
  Report Type: Spontaneous
  Country: GB (occurrence: GB)
  Receive Date: 20200505
  Receipt Date: 20200505
  Transmission Date: 20200714
  Serious: Yes (Hospitalization)
  Sender: FDA-Public Use
  Company Number: GB-MYLANLABS-2020M1034224

PATIENT
  Age: 47 Year
  Sex: Male

DRUGS (1)
  1. CLOZARIL [Suspect]
     Active Substance: CLOZAPINE
     Indication: SCHIZOPHRENIA
     Dosage: UNK
     Route: 048
     Dates: start: 20030107, end: 20200402

REACTIONS (5)
  - Sedation [Unknown]
  - Leukocytosis [Unknown]
  - Differential white blood cell count abnormal [Unknown]
  - Neutrophilia [Unknown]
  - COVID-19 [Unknown]

NARRATIVE: CASE EVENT DATE: 20200327
